FAERS Safety Report 23997864 (Version 1)
Quarter: 2024Q2

REPORT INFORMATION
  Report Type: Spontaneous
  Country: CA (occurrence: CA)
  Receive Date: 20240621
  Receipt Date: 20240621
  Transmission Date: 20240715
  Serious: Yes (Hospitalization)
  Sender: FDA-Public Use
  Company Number: CA-CELLTRION INC.-2024CA014786

PATIENT

DRUGS (1)
  1. TRASTUZUMAB [Suspect]
     Active Substance: TRASTUZUMAB
     Indication: HER2 positive breast cancer
     Dosage: 326.7 MG, 1 EVERY 3 WEEKS
     Route: 042

REACTIONS (4)
  - Hepatic enzyme increased [Unknown]
  - Asthenia [Unknown]
  - Off label use [Unknown]
  - Underdose [Unknown]
